FAERS Safety Report 9386622 (Version 2)
Quarter: 2013Q3

REPORT INFORMATION
  Report Type: Spontaneous
  Country: DE (occurrence: DE)
  Receive Date: 20130708
  Receipt Date: 20130725
  Transmission Date: 20140515
  Serious: Yes (Other)
  Sender: FDA-Public Use
  Company Number: PHHY2013DE069122

PATIENT
  Age: 46 Year
  Sex: Female

DRUGS (2)
  1. CLOZAPINE [Suspect]
     Indication: PSYCHOTIC DISORDER
     Dosage: 400 MG, UNK
  2. CLOZAPINE [Suspect]
     Dosage: 200 MG, UNK

REACTIONS (3)
  - Poisoning [Unknown]
  - Infection [Unknown]
  - Antipsychotic drug level increased [Unknown]
